FAERS Safety Report 4276172-9 (Version None)
Quarter: 2004Q1

REPORT INFORMATION
  Report Type: 
  Country: None (occurrence: None)
  Receive Date: 20040121
  Receipt Date: 20031210
  Transmission Date: 20041129
  Serious: No
  Sender: FDA-Public Use
  Company Number: US-GLAXOSMITHKLINE-A0443027A

PATIENT
  Age: 49 Year
  Sex: Female

DRUGS (5)
  1. VALTREX [Suspect]
     Route: 048
  2. PERCOCET [Concomitant]
  3. LEXAPRO [Concomitant]
  4. COPEGUS [Concomitant]
     Indication: HEPATITIS C
     Route: 065
  5. PEGASYS [Concomitant]
     Indication: HEPATITIS C
     Route: 065

REACTIONS (1)
  - WHITE BLOOD CELL COUNT DECREASED [None]
